FAERS Safety Report 7493269-0 (Version None)
Quarter: 2011Q2

REPORT INFORMATION
  Report Type: 
  Country: None (occurrence: None)
  Receive Date: 20110520
  Receipt Date: 20110517
  Transmission Date: 20111010
  Serious: Yes (Other)
  Sender: FDA-Public Use
  Company Number: US-PFIZER INC-2011107924

PATIENT
  Sex: Male

DRUGS (2)
  1. NORTRIPTYLINE HCL [Suspect]
  2. LYRICA [Suspect]

REACTIONS (2)
  - SUICIDAL BEHAVIOUR [None]
  - AGGRESSION [None]
